FAERS Safety Report 5719987-X (Version None)
Quarter: 2008Q2

REPORT INFORMATION
  Report Type: 
  Country: None (occurrence: None)
  Receive Date: 20080425
  Receipt Date: 20080425
  Transmission Date: 20081010
  Serious: No
  Sender: FDA-Public Use
  Company Number: None

PATIENT
  Age: 58 Year
  Sex: Male

DRUGS (1)
  1. NAPROXEN [Suspect]
     Dosage: MG BID PO
     Route: 048
     Dates: start: 20070827, end: 20070829

REACTIONS (1)
  - HAEMORRHAGE [None]
